FAERS Safety Report 18096386 (Version 1)
Quarter: 2020Q3

REPORT INFORMATION
  Report Type: Spontaneous
  Country: US (occurrence: US)
  Receive Date: 20200731
  Receipt Date: 20200731
  Transmission Date: 20201103
  Serious: No
  Sender: FDA-Public Use
  Company Number: US-JNJFOC-20200732978

PATIENT

DRUGS (2)
  1. MENS ROGAINE EXTRA STRENGTH [Suspect]
     Active Substance: MINOXIDIL
     Indication: ALOPECIA
     Dosage: MULTIPLE TIMES PER DAY, MUCH MORE THAN RECOMMENDED
     Route: 061
     Dates: start: 201401, end: 201406
  2. MENS ROGAINE EXTRA STRENGTH [Suspect]
     Active Substance: MINOXIDIL
     Indication: PRODUCT USED FOR UNKNOWN INDICATION
     Dosage: MULTIPLE TIMES PER DAY, MUCH MORE THAN RECOMMENDED
     Route: 061

REACTIONS (5)
  - Product use in unapproved indication [Unknown]
  - Product administered at inappropriate site [Unknown]
  - Overdose [Unknown]
  - Alopecia [Unknown]
  - Therapeutic response unexpected [Unknown]

NARRATIVE: CASE EVENT DATE: 201401
